FAERS Safety Report 23977099 (Version 1)
Quarter: 2024Q2

REPORT INFORMATION
  Report Type: Spontaneous
  Country: US (occurrence: US)
  Receive Date: 20240614
  Receipt Date: 20240614
  Transmission Date: 20240716
  Serious: Yes (Other)
  Sender: FDA-Public Use
  Company Number: US-Kiniksa Pharmaceuticals Ltd.-2023KPU000583

PATIENT
  Age: 64 Year
  Sex: Male

DRUGS (1)
  1. ARCALYST [Suspect]
     Active Substance: RILONACEPT
     Indication: Pericarditis
     Route: 058
     Dates: start: 20230618

REACTIONS (13)
  - Atrial fibrillation [Unknown]
  - Chest pain [Unknown]
  - Peripheral swelling [Unknown]
  - Heart rate increased [Unknown]
  - Anxiety [Unknown]
  - Dyspnoea [Unknown]
  - Weight increased [Unknown]
  - Oedema peripheral [Unknown]
  - Oxygen saturation decreased [Unknown]
  - Fatigue [Unknown]
  - Injection site pain [Unknown]
  - Underdose [Unknown]
  - Product complaint [Unknown]

NARRATIVE: CASE EVENT DATE: 20230618
